FAERS Safety Report 4721557-7 (Version None)
Quarter: 2005Q3

REPORT INFORMATION
  Report Type: 
  Country: None (occurrence: None)
  Receive Date: 20050721
  Receipt Date: 20041123
  Transmission Date: 20060218
  Serious: No
  Sender: FDA-Public Use
  Company Number: US-BRISTOL-MYERS SQUIBB COMPANY-12773867

PATIENT
  Age: 63 Year
  Sex: Male
  Weight: 122 kg

DRUGS (5)
  1. COUMADIN [Suspect]
     Indication: CARDIOMEGALY
     Dosage: STARTED THERAPY ^ABOUT 3 MONTHS AGO^
     Route: 048
  2. DIOVAN [Concomitant]
  3. LIPITOR [Concomitant]
  4. TOPROL-XL [Concomitant]
  5. PROTONIX [Concomitant]

REACTIONS (1)
  - WEIGHT INCREASED [None]
